FAERS Safety Report 13011326 (Version 7)
Quarter: 2017Q2

REPORT INFORMATION
  Report Type: Report from Study
  Country: CO (occurrence: CO)
  Receive Date: 20161209
  Receipt Date: 20170403
  Transmission Date: 20170830
  Serious: Yes (Other)
  Sender: FDA-Public Use
  Company Number: CO-ROCHE-1864499

PATIENT
  Age: 42 Year
  Sex: Male

DRUGS (1)
  1. ZELBORAF [Suspect]
     Active Substance: VEMURAFENIB
     Indication: MALIGNANT MELANOMA
     Dosage: 1920 MG EVERY 1 DAY
     Route: 048
     Dates: start: 20161129, end: 20170103

REACTIONS (8)
  - Asthenia [Recovered/Resolved]
  - Lymphadenopathy [Recovering/Resolving]
  - Cholelithiasis [Recovered/Resolved]
  - Chest pain [Recovered/Resolved]
  - Chills [Recovered/Resolved]
  - Headache [Recovered/Resolved]
  - Dyspnoea [Recovered/Resolved]
  - Anxiety [Recovered/Resolved]

NARRATIVE: CASE EVENT DATE: 20161205
